FAERS Safety Report 8231801-X (Version None)
Quarter: 2012Q1

REPORT INFORMATION
  Report Type: 
  Country: None (occurrence: None)
  Receive Date: 20120323
  Receipt Date: 20120315
  Transmission Date: 20120608
  Serious: Yes (Other)
  Sender: FDA-Public Use
  Company Number: US-ROCHE-1044798

PATIENT
  Sex: Male

DRUGS (1)
  1. LUCENTIS [Suspect]
     Indication: PRESUMED OCULAR HISTOPLASMOSIS SYNDROME
     Route: 050
     Dates: start: 20100803

REACTIONS (2)
  - RETINAL TEAR [None]
  - SCOTOMA [None]
